FAERS Safety Report 7278631-3 (Version None)
Quarter: 2011Q1

REPORT INFORMATION
  Report Type: 
  Country: None (occurrence: None)
  Receive Date: 20110207
  Receipt Date: 20110131
  Transmission Date: 20110831
  Serious: No
  Sender: FDA-Public Use
  Company Number: US-PFIZER INC-2011023257

PATIENT
  Sex: Female
  Weight: 58.957 kg

DRUGS (9)
  1. NEURONTIN [Suspect]
     Indication: NECK PAIN
     Dosage: UNK
     Dates: start: 20101115
  2. CARDIZEM [Concomitant]
     Indication: HYPERTENSION
     Dosage: UNK
  3. LEVOTHYROXINE SODIUM [Concomitant]
     Dosage: UNK
  4. TRIAMTERENE [Concomitant]
     Indication: HYPERTENSION
     Dosage: UNK
  5. GABAPENTIN [Concomitant]
     Dosage: UNK
  6. HUMIRA [Suspect]
     Indication: RHEUMATOID ARTHRITIS
     Dosage: 40 MG, 1 IN 2 WEEKS
     Route: 058
     Dates: start: 20050101, end: 20080101
  7. ESOMEPRAZOLE MAGNESIUM [Concomitant]
     Indication: GASTROOESOPHAGEAL REFLUX DISEASE
     Dosage: UNK
  8. HUMIRA [Suspect]
     Dosage: 40 MG, 1 IN 2 WEEKS
     Route: 065
     Dates: start: 20080101
  9. POTASSIUM [Concomitant]
     Dosage: UNK

REACTIONS (1)
  - HEADACHE [None]
